FAERS Safety Report 6788376-1 (Version None)
Quarter: 2010Q2

REPORT INFORMATION
  Report Type: 
  Country: None (occurrence: None)
  Receive Date: 20100623
  Receipt Date: 20080319
  Transmission Date: 20101027
  Serious: Yes (Other)
  Sender: FDA-Public Use
  Company Number: US-PFIZER INC-2008010891

PATIENT
  Sex: Female
  Weight: 213.2 kg

DRUGS (6)
  1. GEODON [Suspect]
     Indication: BIPOLAR I DISORDER
     Route: 048
     Dates: start: 20071215
  2. NEURONTIN [Concomitant]
  3. TOPAMAX [Concomitant]
  4. PAXIL [Concomitant]
  5. HYDROCHLOROTHIAZIDE [Concomitant]
  6. FUROSEMIDE [Concomitant]

REACTIONS (1)
  - DIABETES MELLITUS [None]
